FAERS Safety Report 5925092-X (Version None)
Quarter: 2008Q4

REPORT INFORMATION
  Report Type: 
  Country: None (occurrence: None)
  Receive Date: 20081021
  Receipt Date: 20081010
  Transmission Date: 20090506
  Serious: Yes (Hospitalization, Other)
  Sender: FDA-Public Use
  Company Number: US-BAYER-200828233NA

PATIENT
  Age: 20 Year
  Sex: Female
  Weight: 99 kg

DRUGS (7)
  1. CAMPATH [Suspect]
     Indication: PROPHYLAXIS AGAINST TRANSPLANT REJECTION
     Dosage: AS USED: 20 MG
     Route: 042
     Dates: start: 20060718, end: 20060718
  2. CAMPATH [Suspect]
     Dosage: AS USED: 20 MG
     Route: 042
     Dates: start: 20060720, end: 20060720
  3. PRAVASTATIN [Concomitant]
     Dates: start: 20060723
  4. AMLODIPINE [Concomitant]
     Dates: start: 20060723
  5. FERROUS SULFATE [Concomitant]
     Dates: start: 20060828
  6. PROGRAF [Concomitant]
     Dates: start: 20060727
  7. SIROLIMUS [Concomitant]
     Dates: start: 20070212

REACTIONS (2)
  - LOBAR PNEUMONIA [None]
  - PNEUMOTHORAX [None]
